FAERS Safety Report 14192101 (Version 2)
Quarter: 2017Q4

REPORT INFORMATION
  Report Type: Spontaneous
  Country: MY (occurrence: MY)
  Receive Date: 20171115
  Receipt Date: 20171127
  Transmission Date: 20180321
  Serious: Yes (Hospitalization)
  Sender: FDA-Public Use
  Company Number: MY-SA-2017SA223350

PATIENT
  Sex: Female
  Weight: 2 kg

DRUGS (12)
  1. CLEXANE [Concomitant]
     Active Substance: ENOXAPARIN SODIUM
     Route: 064
     Dates: start: 20170424
  2. NIFEDIPINE. [Concomitant]
     Active Substance: NIFEDIPINE
     Route: 064
     Dates: start: 20171005
  3. LANTUS [Suspect]
     Active Substance: INSULIN GLARGINE
     Dosage: DOSE:24 UNIT(S)
     Route: 064
     Dates: start: 20160309
  4. LANTUS [Suspect]
     Active Substance: INSULIN GLARGINE
     Route: 064
  5. METHYLDOPA. [Concomitant]
     Active Substance: METHYLDOPA
     Route: 064
     Dates: start: 20170425
  6. VIFORCIT [Concomitant]
     Indication: HYPOCHROMIC ANAEMIA
     Route: 064
     Dates: start: 20170608
  7. GLUCOSE [Concomitant]
     Active Substance: DEXTROSE
     Route: 064
     Dates: start: 2017
  8. HUMALOG [Suspect]
     Active Substance: INSULIN LISPRO
     Route: 064
     Dates: start: 20150317
  9. OBIMIN [Concomitant]
     Route: 064
  10. LANTUS [Suspect]
     Active Substance: INSULIN GLARGINE
     Route: 064
  11. LANTUS [Suspect]
     Active Substance: INSULIN GLARGINE
     Dosage: DOSE:24 UNIT(S)
     Route: 064
  12. LANTUS [Suspect]
     Active Substance: INSULIN GLARGINE
     Dosage: DOSE:24 UNIT(S)
     Route: 064

REACTIONS (4)
  - Infantile apnoea [Unknown]
  - Foetal exposure during pregnancy [Unknown]
  - Heart disease congenital [Unknown]
  - Neonatal respiratory distress syndrome [Unknown]

NARRATIVE: CASE EVENT DATE: 2017
